FAERS Safety Report 9450239 (Version 2)
Quarter: 2013Q3

REPORT INFORMATION
  Report Type: Spontaneous
  Country: KR (occurrence: KR)
  Receive Date: 20130809
  Receipt Date: 20130820
  Transmission Date: 20140515
  Serious: Yes (Hospitalization)
  Sender: FDA-Public Use
  Company Number: KR-JNJFOC-20130800969

PATIENT
  Age: 45 Year
  Sex: Male

DRUGS (7)
  1. DUROGESIC D-TRANS [Suspect]
     Indication: PAIN
     Route: 062
  2. DUROGESIC D-TRANS [Suspect]
     Indication: PAIN
     Route: 062
  3. DUROGESIC D-TRANS [Suspect]
     Indication: PAIN
     Route: 062
  4. DUROGESIC D-TRANS [Suspect]
     Indication: PAIN
     Route: 062
  5. DUROGESIC D-TRANS [Suspect]
     Indication: PAIN
     Route: 062
     Dates: end: 201308
  6. DUROGESIC D-TRANS [Suspect]
     Indication: PAIN
     Route: 062
     Dates: start: 201304
  7. CENTRUM NOS [Concomitant]
     Route: 048

REACTIONS (5)
  - Insomnia [Recovered/Resolved]
  - Discomfort [Recovered/Resolved]
  - Chills [Recovered/Resolved]
  - Pyrexia [Recovered/Resolved]
  - Therapy cessation [Unknown]
